FAERS Safety Report 5857535-4 (Version None)
Quarter: 2008Q3

REPORT INFORMATION
  Report Type: 
  Country: None (occurrence: None)
  Receive Date: 20080826
  Receipt Date: 20080814
  Transmission Date: 20090109
  Serious: Yes (Hospitalization)
  Sender: FDA-Public Use
  Company Number: CN-ROCHE-581024

PATIENT
  Sex: Male
  Weight: 55 kg

DRUGS (3)
  1. CELLCEPT [Suspect]
     Indication: PEMPHIGUS
     Route: 048
     Dates: start: 20080401
  2. CELLCEPT [Suspect]
     Dosage: DOSAGE NOT PROVIDED
     Route: 048
     Dates: start: 20070801, end: 20071201
  3. DEXAMETHASONE TAB [Concomitant]
     Indication: PEMPHIGUS
     Route: 048
     Dates: start: 20080401

REACTIONS (5)
  - ANAEMIA [None]
  - DISEASE RECURRENCE [None]
  - DRUG INEFFECTIVE [None]
  - RED BLOOD CELL COUNT DECREASED [None]
  - WHITE BLOOD CELL COUNT DECREASED [None]
